FAERS Safety Report 15207698 (Version 2)
Quarter: 2019Q3

REPORT INFORMATION
  Report Type: Spontaneous
  Country: US (occurrence: US)
  Receive Date: 20180727
  Receipt Date: 20190808
  Transmission Date: 20191004
  Serious: No
  Sender: FDA-Public Use
  Company Number: US-ALLERGAN-1733625US

PATIENT
  Age: 52 Year
  Sex: Male

DRUGS (4)
  1. ANDRODERM [Suspect]
     Active Substance: TESTOSTERONE
     Dosage: 4 MG, QD
     Route: 062
     Dates: start: 2017
  2. ANDRODERM [Suspect]
     Active Substance: TESTOSTERONE
     Indication: BLOOD TESTOSTERONE DECREASED
     Dosage: 4 MG, QD
     Route: 062
     Dates: start: 2017
  3. VITAMIN D [Concomitant]
     Active Substance: VITAMIN D NOS
     Indication: PRODUCT USED FOR UNKNOWN INDICATION
     Route: 048
  4. CETRIZINE [Concomitant]
     Active Substance: CETIRIZINE HYDROCHLORIDE
     Indication: HYPERSENSITIVITY
     Dosage: UNK UNK, QD
     Route: 048

REACTIONS (8)
  - Drug ineffective [Unknown]
  - Application site erythema [Unknown]
  - Device issue [Unknown]
  - Application site pain [Not Recovered/Not Resolved]
  - Application site urticaria [Unknown]
  - Application site pruritus [Unknown]
  - Product adhesion issue [Unknown]
  - Application site irritation [Unknown]

NARRATIVE: CASE EVENT DATE: 2017
